FAERS Safety Report 4714656-7 (Version None)
Quarter: 2005Q3

REPORT INFORMATION
  Report Type: 
  Country: None (occurrence: None)
  Receive Date: 20050712
  Receipt Date: 20050629
  Transmission Date: 20060218
  Serious: Yes (Life-Threatening)
  Sender: FDA-Public Use
  Company Number: 2005096265

PATIENT
  Age: 14 Year
  Sex: Male
  Weight: 50 kg

DRUGS (9)
  1. CLINDAMYCIN HYDROCHLORIDE [Suspect]
     Indication: ABSCESS
     Dosage: 30 MG (30 MG, PRN INTERVAL: EVERY OTHER DAY), INTRAVENOUS
     Route: 042
     Dates: start: 20040601, end: 20040601
  2. ATROPINE [Concomitant]
  3. MIDAZOLAM HCL [Concomitant]
  4. FENTANYL [Concomitant]
  5. PROPOFOL [Concomitant]
  6. FUROSEMIDE [Concomitant]
  7. SEVOFLURANE [Concomitant]
  8. VECURONIUM (VECURONIUM) [Concomitant]
  9. CEFTRIAXONE [Concomitant]

REACTIONS (5)
  - ACUTE PULMONARY OEDEMA [None]
  - BRADYCARDIA [None]
  - HAEMOPTYSIS [None]
  - HYPOXIA [None]
  - THERAPY NON-RESPONDER [None]
